FAERS Safety Report 10031031 (Version 2)
Quarter: 2014Q2

REPORT INFORMATION
  Report Type: Spontaneous
  Country: US (occurrence: US)
  Receive Date: 20140324
  Receipt Date: 20140507
  Transmission Date: 20141212
  Serious: No
  Sender: FDA-Public Use
  Company Number: US-009507513-1403USA009979

PATIENT
  Age: 3 Year
  Sex: Female
  Weight: 14.9 kg

DRUGS (2)
  1. PEGINTRON [Suspect]
     Indication: CHRONIC HEPATITIS C
     Dosage: 60.8 MICROGRAM, QD; DOSAGE FORM: 80 MCG/0.5 ML
     Route: 058
     Dates: start: 20140214
  2. REBETOL [Suspect]
     Indication: HEPATITIS C
     Dosage: 0.5 DF, BID; TOTAL DAILY DOSE: 0.5 TABLET
     Route: 048
     Dates: start: 20140214

REACTIONS (7)
  - Lethargy [Not Recovered/Not Resolved]
  - Irritability [Not Recovered/Not Resolved]
  - Influenza like illness [Not Recovered/Not Resolved]
  - Pyrexia [Recovered/Resolved]
  - Vomiting [Not Recovered/Not Resolved]
  - Pyrexia [Recovered/Resolved]
  - Wrong technique in drug usage process [Unknown]
